FAERS Safety Report 4402848-6 (Version None)
Quarter: 2004Q3

REPORT INFORMATION
  Report Type: 
  Country: None (occurrence: None)
  Receive Date: 20040719
  Receipt Date: 20040707
  Transmission Date: 20050211
  Serious: Yes (Other)
  Sender: FDA-Public Use
  Company Number: HQ3779215AUG2002

PATIENT
  Age: 47 Year
  Sex: Male
  Weight: 81.72 kg

DRUGS (12)
  1. EFFEXOR XR [Suspect]
     Indication: ANXIETY
     Dosage: SEE IMAGE
     Route: 048
     Dates: start: 20020101, end: 20020101
  2. EFFEXOR XR [Suspect]
     Indication: ANXIETY
     Dosage: SEE IMAGE
     Route: 048
     Dates: start: 20020101, end: 20020101
  3. EFFEXOR XR [Suspect]
     Indication: ANXIETY
     Dosage: SEE IMAGE
     Route: 048
     Dates: start: 20020101, end: 20020101
  4. EFFEXOR XR [Suspect]
     Indication: ANXIETY
     Dosage: SEE IMAGE
     Route: 048
     Dates: start: 20020101, end: 20020101
  5. EFFEXOR [Suspect]
     Indication: AGITATION
     Dosage: ORAL
     Route: 048
     Dates: start: 20020101, end: 20030401
  6. SYNTHROID [Concomitant]
  7. NORPACE - SLOW RELEASE (DISOPYRAMIDE PHOSPHATE) [Concomitant]
  8. ATENOLOL [Concomitant]
  9. LANOXIN [Concomitant]
  10. CLORAZEPATE (CLORAZEPATE  DIPOTASSIUM) [Concomitant]
  11. ELAVIL (AMITRIPTYLINE HYDROCHLORIEDE) [Concomitant]
  12. TRAZODONE HCL [Concomitant]

REACTIONS (11)
  - ABNORMAL DREAMS [None]
  - ARRHYTHMIA [None]
  - CONSTIPATION [None]
  - CONVULSION [None]
  - DRUG INEFFECTIVE [None]
  - DRUG WITHDRAWAL SYNDROME [None]
  - DYSGEUSIA [None]
  - FEELING ABNORMAL [None]
  - HYPOAESTHESIA [None]
  - MUSCLE TWITCHING [None]
  - TREATMENT NONCOMPLIANCE [None]
